FAERS Safety Report 21493136 (Version 1)
Quarter: 2022Q4

REPORT INFORMATION
  Report Type: Spontaneous
  Country: JP (occurrence: None)
  Receive Date: 20221021
  Receipt Date: 20221021
  Transmission Date: 20230113
  Serious: Yes (Life-Threatening, Other)
  Sender: FDA-Public Use
  Company Number: 2022A351156

PATIENT
  Age: 64 Year
  Sex: Male

DRUGS (4)
  1. IMFINZI [Suspect]
     Active Substance: DURVALUMAB
     Indication: Small cell lung cancer
     Dosage: DOSE UNKNOWN
     Route: 041
  2. CARBOPLATIN [Concomitant]
     Active Substance: CARBOPLATIN
     Indication: Small cell lung cancer
     Dosage: DOSE UNKNOWN
     Route: 065
  3. ETOPOSIDE [Concomitant]
     Active Substance: ETOPOSIDE
     Indication: Small cell lung cancer
     Dosage: DOSE UNKNOWN, ON DAY 1, 2, AND 3 OF EACH CYCLE
     Route: 065
  4. OTHER AGENTS RELATING TO BLOOD AND BODY FLUIDES [Concomitant]
     Indication: Prophylaxis
     Dosage: DOSE UNKNOWN
     Route: 065

REACTIONS (3)
  - Neutrophil count decreased [Unknown]
  - Febrile neutropenia [Unknown]
  - Hypothyroidism [Unknown]
